FAERS Safety Report 5239496-4 (Version None)
Quarter: 2007Q1

REPORT INFORMATION
  Report Type: 
  Country: None (occurrence: None)
  Receive Date: 20070214
  Receipt Date: 20070214
  Transmission Date: 20070707
  Serious: Yes (Hospitalization)
  Sender: FDA-Public Use
  Company Number: None

PATIENT
  Age: 57 Year
  Sex: Female
  Weight: 86.1834 kg

DRUGS (1)
  1. ENALAPRIL MALEATE [Suspect]
     Indication: HYPERTENSION
     Dosage: 20MG TWICE/DAY PO
     Route: 048
     Dates: start: 20060822, end: 20070212

REACTIONS (2)
  - ANGIOEDEMA [None]
  - INCREASED UPPER AIRWAY SECRETION [None]
